FAERS Safety Report 5585950-5 (Version None)
Quarter: 2008Q1

REPORT INFORMATION
  Report Type: 
  Country: None (occurrence: None)
  Receive Date: 20080104
  Receipt Date: 20071012
  Transmission Date: 20080703
  Serious: Yes (Disabling)
  Sender: FDA-Public Use
  Company Number: 2007S1010133

PATIENT
  Age: 29 Year
  Sex: Female

DRUGS (2)
  1. ISOTRETINOIN [Suspect]
     Indication: ACNE
     Dosage: NULL_1_DAY
  2. DIANE 35 (DIANE) [Concomitant]

REACTIONS (1)
  - MYOPIA [None]
